FAERS Safety Report 7469984-1 (Version None)
Quarter: 2011Q2

REPORT INFORMATION
  Report Type: 
  Country: None (occurrence: None)
  Receive Date: 20110510
  Receipt Date: 20110427
  Transmission Date: 20111010
  Serious: Yes (Death, Life-Threatening, Hospitalization, Other)
  Sender: FDA-Public Use
  Company Number: JP-CELGENEUS-TAJPN-11-0140

PATIENT
  Sex: Female
  Weight: 56 kg

DRUGS (11)
  1. NEUTROGIN [Concomitant]
     Route: 065
     Dates: start: 20110120
  2. DALACIN [Concomitant]
     Route: 065
     Dates: start: 20110101
  3. HERCEPTIN [Concomitant]
     Indication: BREAST CANCER METASTATIC
     Dosage: 110 MILLIGRAM
     Dates: start: 20110112, end: 20110112
  4. HUMULIN R [Concomitant]
     Indication: BLOOD GLUCOSE INCREASED
     Route: 050
     Dates: start: 20110118
  5. TIENAM [Concomitant]
     Route: 065
     Dates: start: 20110101
  6. ABRAXANE [Suspect]
     Indication: BREAST CANCER METASTATIC
     Dosage: 390 MILLIGRAM
     Route: 065
     Dates: start: 20110112, end: 20110112
  7. ORGADRONE [Concomitant]
     Route: 065
     Dates: start: 20110212
  8. ORGADRONE [Concomitant]
     Route: 065
     Dates: start: 20110118
  9. INOVAN [Concomitant]
     Indication: BLOOD PRESSURE DECREASED
     Route: 065
     Dates: start: 20110212
  10. ZOSYN [Concomitant]
     Route: 065
     Dates: start: 20110101
  11. FUNGUARD [Concomitant]
     Route: 065
     Dates: start: 20110101

REACTIONS (10)
  - BREAST CANCER METASTATIC [None]
  - ALTERED STATE OF CONSCIOUSNESS [None]
  - INFECTION [None]
  - HAEMOGLOBIN DECREASED [None]
  - PYREXIA [None]
  - WHITE BLOOD CELL COUNT DECREASED [None]
  - PLATELET COUNT DECREASED [None]
  - CEREBRAL INFARCTION [None]
  - DISSEMINATED INTRAVASCULAR COAGULATION [None]
  - HYPERGLYCAEMIA [None]
